FAERS Safety Report 7358082-3 (Version None)
Quarter: 2011Q1

REPORT INFORMATION
  Report Type: 
  Country: None (occurrence: None)
  Receive Date: 20110317
  Receipt Date: 20110308
  Transmission Date: 20110831
  Serious: Yes (Hospitalization)
  Sender: FDA-Public Use
  Company Number: AT-ELI_LILLY_AND_COMPANY-AT201102001253

PATIENT
  Sex: Male
  Weight: 120 kg

DRUGS (9)
  1. NICORETTE [Concomitant]
     Dosage: PLASTER, 25MG/16 H
     Route: 050
  2. ACEMIN [Concomitant]
     Dosage: UNK, UNKNOWN
     Route: 065
  3. METFORMIN HCL [Concomitant]
     Dosage: 850 MG, UNKNOWN
     Route: 065
     Dates: end: 20101218
  4. DANCOR [Concomitant]
     Dosage: 10 MG, UNKNOWN
     Route: 065
  5. DILATREND [Concomitant]
     Dosage: 6.25 MG, UNKNOWN
     Route: 065
  6. ASPIRIN [Concomitant]
     Dosage: UNK, UNKNOWN
     Route: 065
  7. NICORETTE [Concomitant]
     Dosage: 10 MG, OTHER
     Route: 055
  8. EFFIENT [Suspect]
     Indication: ACUTE MYOCARDIAL INFARCTION
     Dosage: UNK, UNKNOWN
     Route: 065
     Dates: start: 20100926
  9. SORTIS [Concomitant]
     Dosage: 80 MG, UNKNOWN
     Route: 065

REACTIONS (3)
  - CARDIAC FAILURE CONGESTIVE [None]
  - CORONARY ARTERY DISEASE [None]
  - ANGINA PECTORIS [None]
